FAERS Safety Report 10950174 (Version 2)
Quarter: 2015Q2

REPORT INFORMATION
  Report Type: Other
  Country: US (occurrence: US)
  Receive Date: 20150324
  Receipt Date: 20150501
  Transmission Date: 20150821
  Serious: Yes (Other)
  Sender: FDA-Public Use
  Company Number: US-SHIRE-US201502325

PATIENT
  Sex: Male

DRUGS (1)
  1. VPRIV [Suspect]
     Active Substance: VELAGLUCERASE ALFA
     Indication: GAUCHER^S DISEASE
     Dosage: 45 IU/KG, 1X/2WKS
     Route: 041
     Dates: start: 1995

REACTIONS (3)
  - Intervertebral disc protrusion [Unknown]
  - Cervical spinal stenosis [Recovered/Resolved]
  - Bone disorder [Unknown]
